FAERS Safety Report 13767132 (Version 1)
Quarter: 2017Q3

REPORT INFORMATION
  Report Type: Spontaneous
  Country: US (occurrence: US)
  Receive Date: 20170719
  Receipt Date: 20170719
  Transmission Date: 20171127
  Serious: No
  Sender: FDA-Public Use
  Company Number: US-GLAXOSMITHKLINE-US2017GSK108678

PATIENT

DRUGS (2)
  1. VENTOLIN HFA [Suspect]
     Active Substance: ALBUTEROL SULFATE
  2. BREO ELLIPTA [Suspect]
     Active Substance: FLUTICASONE FUROATE\VILANTEROL TRIFENATATE

REACTIONS (7)
  - Emphysema [Unknown]
  - Oropharyngeal pain [Unknown]
  - Gingival disorder [Unknown]
  - Oral disorder [Unknown]
  - Ill-defined disorder [Unknown]
  - Bone loss [Unknown]
  - Pain [Unknown]
